FAERS Safety Report 4944133-X (Version None)
Quarter: 2006Q1

REPORT INFORMATION
  Report Type: 
  Country: None (occurrence: None)
  Receive Date: 20060309
  Receipt Date: 20060224
  Transmission Date: 20060701
  Serious: Yes (Other)
  Sender: FDA-Public Use
  Company Number: 2006US-01689

PATIENT
  Age: 4 Year
  Sex: Female

DRUGS (1)
  1. AMOXICILLIN [Suspect]
     Dosage: 6 ML, QD, ORAL
     Route: 048
     Dates: start: 20060221, end: 20060223

REACTIONS (1)
  - RASH GENERALISED [None]
